FAERS Safety Report 9858815 (Version 2)
Quarter: 2014Q1

REPORT INFORMATION
  Report Type: Spontaneous
  Country: US (occurrence: US)
  Receive Date: 20140131
  Receipt Date: 20140226
  Transmission Date: 20141002
  Serious: Yes (Other)
  Sender: FDA-Public Use
  Company Number: US-FRI-1000053281

PATIENT
  Age: 49 Year
  Sex: Female

DRUGS (3)
  1. VIIBRYD [Suspect]
     Indication: DYSTHYMIC DISORDER
     Dosage: 10 MG
     Route: 048
     Dates: start: 20140102, end: 20140108
  2. VIIBRYD [Suspect]
     Indication: DYSTHYMIC DISORDER
     Dosage: 20 MG
     Route: 048
     Dates: start: 20140109, end: 20140115
  3. AMBIEN [Concomitant]
     Dosage: 10 MG QHS PRN

REACTIONS (3)
  - Suicidal ideation [Recovered/Resolved]
  - Feeling abnormal [Unknown]
  - Off label use [Recovered/Resolved]
